FAERS Safety Report 14693072 (Version 1)
Quarter: 2018Q1

REPORT INFORMATION
  Report Type: Spontaneous
  Country: FR (occurrence: FR)
  Receive Date: 20180329
  Receipt Date: 20180329
  Transmission Date: 20180509
  Serious: Yes (Other)
  Sender: FDA-Public Use
  Company Number: FR-MERCK KGAA-2044756

PATIENT
  Age: 46 Year
  Sex: Female

DRUGS (1)
  1. NOVOTHYROX [Suspect]
     Active Substance: LEVOTHYROXINE SODIUM
     Indication: AUTOIMMUNE HYPOTHYROIDISM

REACTIONS (17)
  - Bipolar disorder [None]
  - Feeling jittery [None]
  - Bone pain [None]
  - Migraine [None]
  - Asthenia [None]
  - Anxiety [None]
  - Fatigue [Not Recovered/Not Resolved]
  - Somnolence [None]
  - Mobility decreased [None]
  - Bedridden [None]
  - Loss of libido [None]
  - Irritability [None]
  - Tendonitis [None]
  - Loss of personal independence in daily activities [None]
  - Headache [Recovered/Resolved]
  - Mood altered [None]
  - Arthralgia [Not Recovered/Not Resolved]

NARRATIVE: CASE EVENT DATE: 201706
